FAERS Safety Report 16292377 (Version 3)
Quarter: 2022Q2

REPORT INFORMATION
  Report Type: Spontaneous
  Country: US (occurrence: None)
  Receive Date: 20190509
  Receipt Date: 20220420
  Transmission Date: 20220721
  Serious: Yes (Other)
  Sender: FDA-Public Use
  Company Number: 2019SE62738

PATIENT
  Age: 63 Year
  Sex: Male

DRUGS (48)
  1. NEXIUM [Suspect]
     Active Substance: ESOMEPRAZOLE MAGNESIUM
     Indication: Gastrooesophageal reflux disease
     Route: 048
     Dates: start: 200001, end: 201312
  2. NEXIUM [Suspect]
     Active Substance: ESOMEPRAZOLE MAGNESIUM
     Indication: Gastrooesophageal reflux disease
     Route: 048
     Dates: start: 2001, end: 2018
  3. PREVACID [Suspect]
     Active Substance: LANSOPRAZOLE
     Indication: Gastrooesophageal reflux disease
     Route: 065
     Dates: start: 200001, end: 201312
  4. PREVACID [Suspect]
     Active Substance: LANSOPRAZOLE
     Indication: Gastrooesophageal reflux disease
     Route: 065
     Dates: start: 2000, end: 201306
  5. PREVACID [Suspect]
     Active Substance: LANSOPRAZOLE
     Indication: Gastrooesophageal reflux disease
     Dosage: GENERIC
     Route: 065
     Dates: end: 201907
  6. PREVACID [Suspect]
     Active Substance: LANSOPRAZOLE
     Indication: Gastrooesophageal reflux disease
     Route: 065
     Dates: start: 200001, end: 201306
  7. PREVACID [Suspect]
     Active Substance: LANSOPRAZOLE
     Indication: Gastrooesophageal reflux disease
     Dosage: GENERIC
     Route: 065
     Dates: start: 2010, end: 201907
  8. FUROSEMIDE [Concomitant]
     Active Substance: FUROSEMIDE
     Indication: Fluid retention
     Dates: start: 200603, end: 201302
  9. LIPITOR [Concomitant]
     Active Substance: ATORVASTATIN CALCIUM
     Indication: Blood cholesterol increased
     Dates: start: 200604, end: 200704
  10. LISINOPRIL [Concomitant]
     Active Substance: LISINOPRIL
     Indication: Hypertension
     Dates: start: 200605, end: 201110
  11. ALLOPURINOL [Concomitant]
     Active Substance: ALLOPURINOL
     Indication: Acidosis
     Dates: start: 200611, end: 201308
  12. AZITHROMYCIN [Concomitant]
     Active Substance: AZITHROMYCIN
     Indication: Infection
     Dates: start: 200711, end: 200711
  13. PENICILLIN [Concomitant]
     Active Substance: PENICILLIN
     Indication: Infection
     Dates: start: 200805, end: 200806
  14. TRAMADOL [Concomitant]
     Active Substance: TRAMADOL
     Indication: Pain
     Dates: start: 200809, end: 201211
  15. CIPROFLOXACIN [Concomitant]
     Active Substance: CIPROFLOXACIN
     Indication: Infection
     Dates: start: 200904, end: 200905
  16. HYDRALAZINE [Concomitant]
     Active Substance: HYDRALAZINE HYDROCHLORIDE
     Indication: Hypertension
     Dates: start: 201205, end: 201404
  17. NAPROXEN [Concomitant]
     Active Substance: NAPROXEN
     Indication: Pain
     Dates: start: 201501, end: 201502
  18. AMOXICILLIN [Concomitant]
     Active Substance: AMOXICILLIN
     Indication: Infection
     Dates: start: 201901, end: 201901
  19. VERAPAMIL [Concomitant]
     Active Substance: VERAPAMIL HYDROCHLORIDE
  20. ACCOLATE [Concomitant]
     Active Substance: ZAFIRLUKAST
  21. ALBUTEROL [Concomitant]
     Active Substance: ALBUTEROL
  22. NOVOLOG [Concomitant]
     Active Substance: INSULIN ASPART
  23. PREDNISONE [Concomitant]
     Active Substance: PREDNISONE
  24. PREDNISOLONE [Concomitant]
     Active Substance: PREDNISOLONE
  25. DOXAZOSIN [Concomitant]
     Active Substance: DOXAZOSIN MESYLATE
  26. CLONIDINE [Concomitant]
     Active Substance: CLONIDINE
  27. MINOXIDIL [Concomitant]
     Active Substance: MINOXIDIL
  28. LANTUS [Concomitant]
     Active Substance: INSULIN GLARGINE
  29. METOLAZONE [Concomitant]
     Active Substance: METOLAZONE
  30. LOTEMAX [Concomitant]
     Active Substance: LOTEPREDNOL ETABONATE
  31. CLOTRIMAZOLE [Concomitant]
     Active Substance: CLOTRIMAZOLE
  32. ALPHAGAN P [Concomitant]
     Active Substance: BRIMONIDINE TARTRATE
  33. THEOPHYLLINE [Concomitant]
     Active Substance: THEOPHYLLINE
  34. ACTONEL [Concomitant]
     Active Substance: RISEDRONATE SODIUM
  35. DORZOLAMIDE\TIMOLOL [Concomitant]
     Active Substance: DORZOLAMIDE\TIMOLOL
  36. CEPHALEXIN [Concomitant]
     Active Substance: CEPHALEXIN
  37. ISOSORBIDE MONONITRATE [Concomitant]
     Active Substance: ISOSORBIDE MONONITRATE
  38. ALFUZOSIN [Concomitant]
     Active Substance: ALFUZOSIN
  39. MONTELUKAST [Concomitant]
     Active Substance: MONTELUKAST SODIUM
  40. FLECAINIDE [Concomitant]
     Active Substance: FLECAINIDE
  41. RESTASIS [Concomitant]
     Active Substance: CYCLOSPORINE
  42. ONDANSETRON [Concomitant]
     Active Substance: ONDANSETRON
  43. POLYETHYLENE GLYCOL [Concomitant]
     Active Substance: POLYETHYLENE GLYCOL
  44. LIDOCAINE [Concomitant]
     Active Substance: LIDOCAINE
  45. BREO ELLIPTA [Concomitant]
     Active Substance: FLUTICASONE FUROATE\VILANTEROL TRIFENATATE
  46. ELIQUIS [Concomitant]
     Active Substance: APIXABAN
  47. NEPHRO VITE RX [Concomitant]
     Active Substance: ASCORBIC ACID\BIOTIN\CALCIUM PANTOTHENATE\CYANOCOBALAMIN\FOLIC ACID\NIACINAMIDE\PYRIDOXINE HYDROCHLO
  48. BENADRYL [Concomitant]
     Active Substance: DIPHENHYDRAMINE HYDROCHLORIDE
     Indication: Pruritus
     Dates: start: 201205, end: 201404

REACTIONS (2)
  - Chronic kidney disease [Unknown]
  - Acute kidney injury [Unknown]

NARRATIVE: CASE EVENT DATE: 20130101
